FAERS Safety Report 16412667 (Version 5)
Quarter: 2019Q4

REPORT INFORMATION
  Report Type: Report from Study
  Country: US (occurrence: US)
  Receive Date: 20190611
  Receipt Date: 20191214
  Transmission Date: 20200122
  Serious: No
  Sender: FDA-Public Use
  Company Number: PHEH2019US024087

PATIENT
  Sex: Male

DRUGS (2)
  1. ENTRESTO [Suspect]
     Active Substance: SACUBITRIL\VALSARTAN
     Indication: CARDIAC FAILURE
     Dosage: 50 MG (SACUBITRIL 24MG AND VALSARTAN 26MG), BID
     Route: 048
  2. ENTRESTO [Suspect]
     Active Substance: SACUBITRIL\VALSARTAN
     Dosage: 100 MG (SACUBITRIL 49MG AND VALSARTAN 51MG), BID
     Route: 048

REACTIONS (7)
  - Dyspnoea [Unknown]
  - Weight decreased [Unknown]
  - Fluid retention [Unknown]
  - Insomnia [Unknown]
  - Hypotension [Unknown]
  - Dizziness [Unknown]
  - Depression [Unknown]
